FAERS Safety Report 9700857 (Version 1)
Quarter: 2013Q4

REPORT INFORMATION
  Report Type: Spontaneous
  Country: US (occurrence: US)
  Receive Date: 20131121
  Receipt Date: 20131121
  Transmission Date: 20140711
  Serious: No
  Sender: FDA-Public Use
  Company Number: US-009507513-1311USA005912

PATIENT
  Age: 55 Year
  Sex: Female

DRUGS (8)
  1. AZASITE [Suspect]
     Indication: EYE INFECTION
     Dosage: 1 DROP IN EACH EYE TWICE DAILY
     Route: 047
     Dates: start: 201310
  2. AZASITE [Suspect]
     Indication: DRY EYE
  3. PREGNENOLONE [Concomitant]
     Dosage: 50 MG, QD
  4. DHEA [Concomitant]
     Dosage: 10 MG, QD
  5. TESTOSTERONE [Concomitant]
     Dosage: 40 MG, QD
  6. VIIBRYD [Concomitant]
     Dosage: 40 MG, QD
  7. DOXYCYCLINE [Concomitant]
     Dosage: 50 MG, BID
  8. PROGESTERONE [Concomitant]
     Dosage: 100 MG, QD

REACTIONS (5)
  - Eye infection [Recovering/Resolving]
  - Drug ineffective [Unknown]
  - Expired drug administered [Unknown]
  - Product physical consistency issue [Unknown]
  - Dry eye [Recovering/Resolving]
